FAERS Safety Report 10178381 (Version 3)
Quarter: 2014Q3

REPORT INFORMATION
  Report Type: Spontaneous
  Country: FR (occurrence: FR)
  Receive Date: 20140519
  Receipt Date: 20140729
  Transmission Date: 20150326
  Serious: Yes (Hospitalization)
  Sender: FDA-Public Use
  Company Number: FR-RANBAXY-2007RR-06261

PATIENT
  Age: 65 Year
  Sex: Female

DRUGS (1)
  1. AMOXICILLINE/ACIDE CLAVULANIQUE RPG [Suspect]
     Active Substance: AMOXICILLIN\CLAVULANATE POTASSIUM
     Indication: PRODUCT USED FOR UNKNOWN INDICATION
     Dosage: 1 G, SINGLE
     Route: 048
     Dates: start: 20070215, end: 20070215

REACTIONS (1)
  - Angioedema [Recovered/Resolved]
